FAERS Safety Report 8609619 (Version 2)
Quarter: 2012Q4

REPORT INFORMATION
  Report Type: 
  Country: US (occurrence: US)
  Receive Date: 20120612
  Receipt Date: 20120928
  Transmission Date: 20130627
  Serious: Yes (Hospitalization, Other)
  Sender: FDA-Public Use
  Company Number: US-BAYER-2012-056051

PATIENT
  Age: 34 Year
  Sex: Female
  Weight: 81.63 kg

DRUGS (1)
  1. YASMIN [Suspect]
     Dosage: UNK
     Dates: start: 2002, end: 2006

REACTIONS (10)
  - Thrombosis [None]
  - Injury [None]
  - Pain [None]
  - Emotional distress [None]
  - Anxiety [None]
  - Psychological trauma [None]
  - Anhedonia [None]
  - Fear [None]
  - Chest pain [None]
  - Migraine [None]
